FAERS Safety Report 7247035-1 (Version None)
Quarter: 2011Q1

REPORT INFORMATION
  Report Type: 
  Country: None (occurrence: None)
  Receive Date: 20110127
  Receipt Date: 20110117
  Transmission Date: 20110831
  Serious: Yes (Other)
  Sender: FDA-Public Use
  Company Number: US-JNJFOC-20110104666

PATIENT
  Age: 67 Year
  Sex: Female
  Weight: 61.24 kg

DRUGS (11)
  1. EXTRA STRENGTH TYLENOL [Suspect]
     Route: 048
  2. ASPIRIN [Concomitant]
     Indication: CEREBROVASCULAR ACCIDENT PROPHYLAXIS
  3. EXTRA STRENGTH TYLENOL [Suspect]
     Indication: ANALGESIC THERAPY
     Dosage: 2 CAPLETS, ABOUT 3 TIMES A DAY, FOR 3 DAYS.
     Route: 048
  4. OTHER THERAPEUTIC PRODUCT [Concomitant]
     Indication: ABDOMINAL PAIN UPPER
  5. EXFORGE [Concomitant]
     Indication: HYPERTENSION
     Route: 065
  6. VITAMIN D [Concomitant]
  7. CALCIUM [Concomitant]
     Dosage: 1 PILL A DAY
     Route: 065
  8. PREVACID [Concomitant]
     Indication: GASTROOESOPHAGEAL REFLUX DISEASE
     Route: 065
  9. EXFORGE [Concomitant]
     Indication: RENAL DISORDER
     Route: 065
  10. BUSPAR [Concomitant]
     Indication: ANXIETY
     Route: 065
  11. MAGNESIUM [Concomitant]
     Route: 065

REACTIONS (3)
  - URTICARIA [None]
  - PRODUCT QUALITY ISSUE [None]
  - THROAT TIGHTNESS [None]
